FAERS Safety Report 25225628 (Version 2)
Quarter: 2025Q2

REPORT INFORMATION
  Report Type: Report from Study
  Country: IT (occurrence: IT)
  Receive Date: 20250422
  Receipt Date: 20250506
  Transmission Date: 20250717
  Serious: Yes (Other)
  Sender: PFIZER
  Company Number: None

PATIENT
  Age: 2 Month
  Sex: Female
  Weight: 4 kg

DRUGS (4)
  1. AZITHROMYCIN [Suspect]
     Active Substance: AZITHROMYCIN
     Indication: Interstitial lung disease
     Dates: start: 20240508, end: 20240727
  2. REVATIO [Concomitant]
     Active Substance: SILDENAFIL CITRATE
     Indication: Pulmonary hypertension
     Dates: start: 20240505, end: 20240829
  3. PLAQUENIL [Concomitant]
     Active Substance: HYDROXYCHLOROQUINE SULFATE
     Indication: Interstitial lung disease
     Dates: start: 20240613, end: 20240829
  4. LASIX [Concomitant]
     Active Substance: FUROSEMIDE
     Indication: Atrial septal defect
     Dates: start: 20240713, end: 20240720

REACTIONS (6)
  - Off label use [Unknown]
  - Obstruction gastric [Recovered/Resolved]
  - Vomiting projectile [Recovered/Resolved]
  - Infantile diarrhoea [Recovered/Resolved]
  - Pyrexia [Unknown]
  - Gastroenteritis [Unknown]

NARRATIVE: CASE EVENT DATE: 20240508
